FAERS Safety Report 13399884 (Version 1)
Quarter: 2017Q2

REPORT INFORMATION
  Report Type: Spontaneous
  Country: US (occurrence: US)
  Receive Date: 20170404
  Receipt Date: 20170404
  Transmission Date: 20170830
  Serious: No
  Sender: FDA-Public Use
  Company Number: None

PATIENT
  Age: 49 Year
  Sex: Female
  Weight: 94.5 kg

DRUGS (1)
  1. ROPINIROL [Suspect]
     Active Substance: ROPINIROLE
     Indication: RESTLESS LEGS SYNDROME

REACTIONS (3)
  - Gambling disorder [None]
  - Economic problem [None]
  - Drug monitoring procedure not performed [None]

NARRATIVE: CASE EVENT DATE: 20160101
